FAERS Safety Report 10607598 (Version 2)
Quarter: 2015Q1

REPORT INFORMATION
  Report Type: Spontaneous
  Country: US (occurrence: US)
  Receive Date: 20141125
  Receipt Date: 20150119
  Transmission Date: 20150720
  Serious: No
  Sender: FDA-Public Use
  Company Number: US-ASTRAZENECA-2014SE86526

PATIENT
  Sex: Male
  Weight: 83 kg

DRUGS (19)
  1. PANTOPRAZOLE [Concomitant]
     Active Substance: PANTOPRAZOLE SODIUM
     Indication: DYSPEPSIA
     Route: 048
     Dates: start: 2009
  2. LIPITOR [Concomitant]
     Active Substance: ATORVASTATIN CALCIUM
     Indication: BLOOD CHOLESTEROL ABNORMAL
     Route: 048
     Dates: start: 201408
  3. CITIRIZINE [Concomitant]
     Indication: NASAL CONGESTION
     Route: 048
     Dates: start: 2004
  4. LISINOPRIL. [Suspect]
     Active Substance: LISINOPRIL
     Indication: BLOOD PRESSURE ABNORMAL
     Route: 048
     Dates: start: 2010, end: 2010
  5. SYMBICORT [Suspect]
     Active Substance: BUDESONIDE\FORMOTEROL FUMARATE DIHYDRATE
     Indication: ASTHMA
     Dosage: 320 MCG TWO TIMES A DAY
     Route: 055
     Dates: start: 201409, end: 201410
  6. SYMBICORT [Suspect]
     Active Substance: BUDESONIDE\FORMOTEROL FUMARATE DIHYDRATE
     Indication: ASTHMA
     Route: 055
  7. LISINOPRIL. [Suspect]
     Active Substance: LISINOPRIL
     Indication: BLOOD PRESSURE ABNORMAL
     Route: 048
     Dates: start: 2010, end: 201408
  8. TYLENOL [Concomitant]
     Active Substance: ACETAMINOPHEN
     Indication: HEADACHE
     Route: 048
  9. AMLODIPINE [Concomitant]
     Active Substance: AMLODIPINE BESYLATE
     Indication: BLOOD PRESSURE ABNORMAL
     Route: 048
     Dates: start: 201405
  10. LEVOTHYROXINE [Concomitant]
     Active Substance: LEVOTHYROXINE
     Indication: THYROID DISORDER
     Route: 048
     Dates: start: 201407
  11. SPIRIVA [Concomitant]
     Active Substance: TIOTROPIUM BROMIDE MONOHYDRATE
     Indication: ASTHMA
     Dates: start: 2007
  12. ANDROGEL [Concomitant]
     Active Substance: TESTOSTERONE
     Indication: BLOOD TESTOSTERONE ABNORMAL
     Dates: start: 2008
  13. METRO NIDAZOLE [Concomitant]
     Indication: BLOOD PRESSURE ABNORMAL
     Route: 048
     Dates: start: 2013
  14. CRESTOR [Suspect]
     Active Substance: ROSUVASTATIN CALCIUM
     Indication: BLOOD CHOLESTEROL ABNORMAL
     Route: 048
  15. METAMUCIL [Concomitant]
     Active Substance: PLANTAGO SEED
     Indication: CONSTIPATION
     Dosage: DAILY
     Route: 048
     Dates: start: 2004
  16. NITROGLYCERINE [Concomitant]
     Active Substance: NITROGLYCERIN
     Indication: CHEST PAIN
  17. PLAVIX [Concomitant]
     Active Substance: CLOPIDOGREL BISULFATE
     Indication: SURGERY
     Route: 048
     Dates: start: 2010
  18. NASONEX [Concomitant]
     Active Substance: MOMETASONE FUROATE
     Dosage: AT NIGHT
     Route: 045
  19. SINGULAIR [Concomitant]
     Active Substance: MONTELUKAST SODIUM
     Indication: ASTHMA
     Route: 048
     Dates: start: 2008

REACTIONS (3)
  - Sleep disorder due to a general medical condition [Unknown]
  - Throat irritation [Unknown]
  - Cough [Recovered/Resolved]
